FAERS Safety Report 19809619 (Version 1)
Quarter: 2021Q3

REPORT INFORMATION
  Report Type: Spontaneous
  Country: US (occurrence: US)
  Receive Date: 20210909
  Receipt Date: 20210909
  Transmission Date: 20211014
  Serious: Yes (Hospitalization)
  Sender: FDA-Public Use
  Company Number: US-PFIZER INC-202101127169

PATIENT
  Age: 42 Year
  Sex: Female
  Weight: 76.19 kg

DRUGS (6)
  1. BIOTIN [Concomitant]
     Active Substance: BIOTIN
     Dosage: 5 MG
  2. ANASTROZOLE GA [Concomitant]
     Dosage: 1 MG
  3. PRILOSEC [Concomitant]
     Active Substance: OMEPRAZOLE MAGNESIUM
     Dosage: 20 MG
  4. CITALOPRAM [Concomitant]
     Active Substance: CITALOPRAM HYDROBROMIDE
     Dosage: 40 MG
  5. IBRANCE [Suspect]
     Active Substance: PALBOCICLIB
     Indication: BREAST CANCER
     Dosage: 100 MG, CYCLIC, DAILY X 21 DAYS
     Route: 048
  6. GABAPENTIN. [Concomitant]
     Active Substance: GABAPENTIN
     Dosage: 100 MG

REACTIONS (3)
  - Rash [Recovered/Resolved]
  - White blood cell count decreased [Recovering/Resolving]
  - Herpes zoster [Unknown]
